FAERS Safety Report 8844628 (Version 1)
Quarter: 2012Q4

REPORT INFORMATION
  Report Type: Spontaneous
  Country: US (occurrence: None)
  Receive Date: 20121015
  Receipt Date: 20121015
  Transmission Date: 20130627
  Serious: No
  Sender: FDA-Public Use
  Company Number: DKLU1077682

PATIENT
  Sex: Female

DRUGS (3)
  1. PANHEMATIN [Suspect]
     Indication: PORPHYRIA ACUTE
     Dosage: CHEST PORT
  2. SALINE [Concomitant]
  3. HEPARIN [Concomitant]

REACTIONS (4)
  - Pyrexia [None]
  - Somnolence [None]
  - Asthenia [None]
  - Decreased appetite [None]
